FAERS Safety Report 4495275-7 (Version None)
Quarter: 2004Q4

REPORT INFORMATION
  Report Type: 
  Country: None (occurrence: None)
  Receive Date: 20041108
  Receipt Date: 20040820
  Transmission Date: 20050328
  Serious: No
  Sender: FDA-Public Use
  Company Number: US-GLAXOSMITHKLINE-A0522925A

PATIENT
  Age: 56 Year
  Sex: Female

DRUGS (11)
  1. AVANDAMET [Suspect]
     Route: 048
     Dates: start: 20040815
  2. CARDIZEM [Concomitant]
  3. ASPIRIN [Concomitant]
  4. PLAVIX [Concomitant]
  5. CALCIUM [Concomitant]
  6. EFFEXOR [Concomitant]
  7. SYNTHROID [Concomitant]
  8. PRAVACHOL [Concomitant]
  9. CLONIDINE HCL [Concomitant]
  10. INSULIN [Concomitant]
  11. PRINIVIL [Concomitant]

REACTIONS (2)
  - BLOOD GLUCOSE DECREASED [None]
  - WEIGHT INCREASED [None]
